FAERS Safety Report 8556069-6 (Version None)
Quarter: 2012Q3

REPORT INFORMATION
  Report Type: 
  Country: None (occurrence: None)
  Receive Date: 20120801
  Receipt Date: 20101217
  Transmission Date: 20120928
  Serious: Yes (Other)
  Sender: FDA-Public Use
  Company Number: US-BAYER-201033840NA

PATIENT
  Age: 24 Year
  Sex: Female
  Weight: 114 kg

DRUGS (9)
  1. DROSPIRENONE AND ETHINYL ESTRADIOL [Suspect]
     Indication: PRODUCT USED FOR UNKNOWN INDICATION
     Dates: start: 20040301, end: 20060101
  2. SECTRAL [Concomitant]
     Indication: HYPERTENSION
     Dates: start: 20030101
  3. ASCORBIC ACID [Concomitant]
     Dates: start: 20000101, end: 20090101
  4. YASMIN [Suspect]
     Indication: CONTRACEPTION
     Dosage: UNK UNK, QD
     Route: 048
     Dates: start: 20040301, end: 20061201
  5. NORVASC [Concomitant]
     Indication: HYPERTENSION
     Dates: start: 20030101
  6. BETA BLOCKING AGENTS [Concomitant]
     Dates: start: 20030101
  7. ACTOS [Concomitant]
     Indication: DIABETES MELLITUS
     Dates: start: 20050501, end: 20070101
  8. ASPIRIN [Concomitant]
  9. YAZ [Suspect]
     Indication: PRODUCT USED FOR UNKNOWN INDICATION
     Dates: start: 20040301, end: 20060101

REACTIONS (7)
  - BILIARY COLIC [None]
  - CHOLECYSTITIS [None]
  - NAUSEA [None]
  - ABDOMINAL PAIN UPPER [None]
  - DYSPEPSIA [None]
  - CHOLELITHIASIS [None]
  - PAIN [None]
